FAERS Safety Report 5694154-7 (Version None)
Quarter: 2008Q2

REPORT INFORMATION
  Report Type: 
  Country: None (occurrence: None)
  Receive Date: 20080402
  Receipt Date: 20080319
  Transmission Date: 20081010
  Serious: Yes (Death, Hospitalization)
  Sender: FDA-Public Use
  Company Number: 2008S1003450

PATIENT
  Age: 66 Year
  Sex: Male
  Weight: 71.6683 kg

DRUGS (6)
  1. HALOPERIDOL [Suspect]
     Indication: AGGRESSION
     Dosage: 5 MG;3 TIMES A DAY; ORAL; 5 MG;X1;ORAL
     Route: 048
     Dates: start: 20080131, end: 20080212
  2. HALOPERIDOL [Suspect]
     Indication: DEMENTIA
     Dosage: 5 MG;3 TIMES A DAY; ORAL; 5 MG;X1;ORAL
     Route: 048
     Dates: start: 20080131, end: 20080212
  3. HALOPERIDOL [Suspect]
     Indication: AGGRESSION
     Dosage: 5 MG;3 TIMES A DAY; ORAL; 5 MG;X1;ORAL
     Route: 048
     Dates: start: 20080216, end: 20080216
  4. HALOPERIDOL [Suspect]
     Indication: DEMENTIA
     Dosage: 5 MG;3 TIMES A DAY; ORAL; 5 MG;X1;ORAL
     Route: 048
     Dates: start: 20080216, end: 20080216
  5. QUETIAPINE FUMARATE [Concomitant]
  6. DEPAKOTE [Concomitant]

REACTIONS (7)
  - AGGRESSION [None]
  - COMA [None]
  - DRUG HYPERSENSITIVITY [None]
  - GENERAL PHYSICAL HEALTH DETERIORATION [None]
  - NEUROLEPTIC MALIGNANT SYNDROME [None]
  - RENAL FAILURE [None]
  - SEPSIS [None]
